FAERS Safety Report 9288368 (Version 3)
Quarter: 2013Q2

REPORT INFORMATION
  Report Type: Spontaneous
  Country: US (occurrence: US)
  Receive Date: 20130514
  Receipt Date: 20130619
  Transmission Date: 20140414
  Serious: Yes (Other)
  Sender: FDA-Public Use
  Company Number: US-PFIZER INC-2013145585

PATIENT
  Age: 54 Year
  Sex: Female
  Weight: 127 kg

DRUGS (4)
  1. CELEBREX [Suspect]
     Indication: ARTHRITIS
     Dosage: 100 MG, 2X/DAY
  2. CELEBREX [Suspect]
     Dosage: 100 MG, 1X/DAY
     Dates: end: 201304
  3. PROCARDIA XL [Suspect]
     Dosage: UNK
  4. BENICAR [Concomitant]
     Indication: HYPERTENSION
     Dosage: UNK

REACTIONS (2)
  - Renal disorder [Unknown]
  - Pain [Recovered/Resolved]
